FAERS Safety Report 4724936-7 (Version None)
Quarter: 2005Q3

REPORT INFORMATION
  Report Type: 
  Country: None (occurrence: None)
  Receive Date: 20050726
  Receipt Date: 20050720
  Transmission Date: 20060218
  Serious: Yes (Life-Threatening, Hospitalization)
  Sender: FDA-Public Use
  Company Number: FR-SANOFI-SYNTHELABO-F01200501328

PATIENT
  Sex: Female
  Weight: 58 kg

DRUGS (1)
  1. OXALIPLATIN [Suspect]
     Indication: OVARIAN CANCER
     Route: 033
     Dates: start: 20050701, end: 20050701

REACTIONS (4)
  - ANAEMIA [None]
  - PERITONEAL HAEMORRHAGE [None]
  - POST PROCEDURAL HAEMORRHAGE [None]
  - THROMBOCYTOPENIA [None]
